FAERS Safety Report 24672153 (Version 1)
Quarter: 2024Q4

REPORT INFORMATION
  Report Type: Report from Study
  Country: CA (occurrence: CA)
  Receive Date: 20241127
  Receipt Date: 20241127
  Transmission Date: 20250114
  Serious: Yes (Other)
  Sender: ABBVIE
  Company Number: CA-ABBVIE-6018222

PATIENT
  Age: 59 Year
  Sex: Female

DRUGS (1)
  1. SKYRIZI [Suspect]
     Active Substance: RISANKIZUMAB-RZAA
     Indication: Psoriatic arthropathy
     Route: 058
     Dates: start: 20240622

REACTIONS (13)
  - Blindness unilateral [Unknown]
  - Headache [Unknown]
  - Vulvovaginal dryness [Unknown]
  - Pyrexia [Unknown]
  - Pruritus [Unknown]
  - Dry skin [Unknown]
  - Ocular hyperaemia [Unknown]
  - Renal pain [Unknown]
  - Pollakiuria [Unknown]
  - Vulvovaginal pruritus [Unknown]
  - Abdominal discomfort [Unknown]
  - Dry throat [Unknown]
  - Foreign body sensation in eyes [Unknown]

NARRATIVE: CASE EVENT DATE: 20240101
